FAERS Safety Report 7668655-6 (Version None)
Quarter: 2011Q3

REPORT INFORMATION
  Report Type: 
  Country: None (occurrence: None)
  Receive Date: 20110808
  Receipt Date: 20110721
  Transmission Date: 20111222
  Serious: Yes (Hospitalization, Other)
  Sender: FDA-Public Use
  Company Number: US-BAYER-201012520NA

PATIENT
  Age: 25 Year
  Sex: Female
  Weight: 110 kg

DRUGS (14)
  1. IBUPROFEN [Concomitant]
     Dosage: 800 MG, TID
     Dates: start: 20090618
  2. LABETALOL HCL [Concomitant]
     Indication: HYPERTENSION
     Dosage: UNK
     Dates: start: 20081110
  3. NIFEDICAL [Concomitant]
     Indication: HYPERTENSION
     Dosage: UNK
     Dates: start: 20081119
  4. ALBUTEROL SULFATE AUTOHALER [Concomitant]
     Indication: ASTHMA
  5. DROSPIRENONE AND ETHINYL ESTRADIOL [Suspect]
     Indication: CONTRACEPTION
     Dosage: UNK
     Dates: start: 20081201, end: 20100201
  6. IBUPROFEN [Concomitant]
     Indication: PAIN
     Dosage: 800 MG, UNK
     Dates: start: 20081019
  7. TRIAMTERENE [Concomitant]
     Indication: DIURETIC THERAPY
     Dosage: UNK UNK, QD
     Route: 048
     Dates: start: 20090501
  8. NITROFURANTOIN [Concomitant]
     Indication: URINARY TRACT INFECTION
     Dosage: UNK
     Dates: start: 20080831
  9. DARVOCET [Concomitant]
     Indication: TOOTHACHE
  10. METHYLDOPA [Concomitant]
     Indication: HYPERTENSION
     Dosage: UNK
     Dates: start: 20081027
  11. OMEPRAZOLE [Concomitant]
     Indication: GASTROOESOPHAGEAL REFLUX DISEASE
     Dosage: 20 MG, OM
  12. PROMETHAZINE [Concomitant]
     Indication: VOMITING
  13. PROPOXYPHENE HYDROCHLORIDE [Concomitant]
     Indication: PAIN
     Dosage: UNK
     Dates: start: 20081019
  14. PROMETHAZINE [Concomitant]
     Indication: NAUSEA
     Dosage: 12.5 MG, PRN
     Dates: start: 20090615

REACTIONS (13)
  - ABDOMINAL PAIN [None]
  - ABDOMINAL DISTENSION [None]
  - DIARRHOEA [None]
  - ABDOMINAL PAIN UPPER [None]
  - DYSPEPSIA [None]
  - CHOLELITHIASIS [None]
  - NAUSEA [None]
  - FLATULENCE [None]
  - CHOLECYSTITIS ACUTE [None]
  - SCAR [None]
  - CONSTIPATION [None]
  - ANXIETY [None]
  - DEPRESSION [None]
